FAERS Safety Report 8343109-2 (Version None)
Quarter: 2012Q1

REPORT INFORMATION
  Report Type: 
  Country: None (occurrence: None)
  Receive Date: 20120330
  Receipt Date: 20110223
  Transmission Date: 20120608
  Serious: Yes (Hospitalization)
  Sender: FDA-Public Use
  Company Number: PHHY2011US15785

PATIENT
  Age: 82 Year
  Sex: Male

DRUGS (2)
  1. EXELON [Suspect]
     Dosage: 4.6 MG, TRANSDERMAL
     Route: 062
  2. MULTAQ [Concomitant]

REACTIONS (3)
  - TREMOR [None]
  - DYSSTASIA [None]
  - PARKINSON'S DISEASE [None]
